FAERS Safety Report 11966274 (Version 4)
Quarter: 2016Q4

REPORT INFORMATION
  Report Type: Spontaneous
  Country: US (occurrence: US)
  Receive Date: 20160127
  Receipt Date: 20161206
  Transmission Date: 20170206
  Serious: No
  Sender: FDA-Public Use
  Company Number: US-ACTELION PHARMACEUTICALS US, INC.-A-US2015-118621

PATIENT
  Age: 58 Year
  Sex: Female

DRUGS (4)
  1. VELETRI [Suspect]
     Active Substance: EPOPROSTENOL
     Indication: PULMONARY HYPERTENSION
     Dosage: 36.76 NG/KG, PER MIN
     Route: 042
     Dates: start: 20141215
  2. ADCIRCA [Concomitant]
     Active Substance: TADALAFIL
  3. LETAIRIS [Concomitant]
     Active Substance: AMBRISENTAN
  4. COUMADIN [Concomitant]
     Active Substance: WARFARIN SODIUM

REACTIONS (7)
  - Sinus congestion [Unknown]
  - Cough [Unknown]
  - Catheter site erythema [Unknown]
  - Ear infection [Unknown]
  - Catheter site pruritus [Unknown]
  - Sinusitis [Unknown]
  - Catheter site infection [Unknown]
